FAERS Safety Report 18098813 (Version 1)
Quarter: 2020Q3

REPORT INFORMATION
  Report Type: Spontaneous
  Country: CA (occurrence: CA)
  Receive Date: 20200731
  Receipt Date: 20200731
  Transmission Date: 20201103
  Serious: No
  Sender: FDA-Public Use
  Company Number: CA-JUBILANT PHARMA LTD-2020CA000631

PATIENT
  Age: 78 Year
  Sex: Female

DRUGS (2)
  1. RUBY?FILL [Suspect]
     Active Substance: RUBIDIUM CHLORIDE RB-82
     Dosage: 1078 MBQ, SINGLE DOSE
     Route: 042
     Dates: start: 20200715, end: 20200715
  2. RUBY?FILL [Suspect]
     Active Substance: RUBIDIUM CHLORIDE RB-82
     Indication: SCAN MYOCARDIAL PERFUSION
     Dosage: 1078 MBQ, SINGLE DOSE
     Route: 042
     Dates: start: 20200715, end: 20200715

REACTIONS (1)
  - Product preparation error [Unknown]

NARRATIVE: CASE EVENT DATE: 20200715
